FAERS Safety Report 9508914 (Version 2)
Quarter: 2013Q3

REPORT INFORMATION
  Report Type: Spontaneous
  Country: US (occurrence: US)
  Receive Date: 20130909
  Receipt Date: 20130909
  Transmission Date: 20140515
  Serious: No
  Sender: FDA-Public Use
  Company Number: US-BRISTOL-MYERS SQUIBB COMPANY-18719591

PATIENT
  Age: 12 Year
  Sex: Male

DRUGS (3)
  1. ABILIFY ORAL SOLUTION [Suspect]
  2. ABILIFY TABS [Concomitant]
  3. METHYLPHENIDATE [Concomitant]
     Dosage: METHYLPHENIDATE ER 36 MG,ER 27 MG,IMMEDIATE RELEASE 10 MG.

REACTIONS (1)
  - Glossodynia [Unknown]
